FAERS Safety Report 16043042 (Version 2)
Quarter: 2019Q1

REPORT INFORMATION
  Report Type: Report from Study
  Country: FR (occurrence: FR)
  Receive Date: 20190306
  Receipt Date: 20190315
  Transmission Date: 20190418
  Serious: Yes (Other)
  Sender: FDA-Public Use
  Company Number: FR-GILEAD-2019-0394603

PATIENT
  Age: 68 Year
  Sex: Male

DRUGS (12)
  1. OBINUTUZUMAB. [Suspect]
     Active Substance: OBINUTUZUMAB
     Dosage: 1000 MG, CYCLICAL
     Route: 041
     Dates: start: 20180502, end: 20180502
  2. OBINUTUZUMAB. [Suspect]
     Active Substance: OBINUTUZUMAB
     Dosage: 1000 MG, CYCLICAL
     Route: 041
     Dates: start: 20180703, end: 20180703
  3. TOPALGIC [TRAMADOL HYDROCHLORIDE] [Concomitant]
     Active Substance: TRAMADOL HYDROCHLORIDE
     Indication: PAIN
     Dosage: 50 MG, PRN
     Route: 048
  4. OBINUTUZUMAB. [Suspect]
     Active Substance: OBINUTUZUMAB
     Dosage: 900 MG,
     Route: 041
     Dates: start: 20180328, end: 20180328
  5. OBINUTUZUMAB. [Suspect]
     Active Substance: OBINUTUZUMAB
     Dosage: 1000 MG, CYCLICAL
     Route: 041
     Dates: start: 20180605, end: 20180605
  6. IDELALISIB [Suspect]
     Active Substance: IDELALISIB
     Indication: WALDENSTROM^S MACROGLOBULINAEMIA REFRACTORY
     Dosage: 150 MG, BID
     Route: 048
     Dates: start: 20180327, end: 20180806
  7. OBINUTUZUMAB. [Suspect]
     Active Substance: OBINUTUZUMAB
     Indication: WALDENSTROM^S MACROGLOBULINAEMIA REFRACTORY
     Dosage: 100 MG,
     Route: 041
     Dates: start: 20180327, end: 20180327
  8. OBINUTUZUMAB. [Suspect]
     Active Substance: OBINUTUZUMAB
     Dosage: 1000 MG, CYCLICAL
     Route: 041
     Dates: start: 20180404, end: 20180404
  9. OBINUTUZUMAB. [Suspect]
     Active Substance: OBINUTUZUMAB
     Dosage: 1000 MG, CYCLICAL
     Route: 041
     Dates: start: 20180411, end: 20180411
  10. NOCTAMIDE [Concomitant]
     Active Substance: LORMETAZEPAM
     Indication: INSOMNIA
     Dosage: 1 DF, PRN
     Route: 048
  11. OBINUTUZUMAB. [Suspect]
     Active Substance: OBINUTUZUMAB
     Dosage: 1000 MG, CYCLICAL
     Route: 041
     Dates: start: 20180731, end: 20180731
  12. LYRICA [Concomitant]
     Active Substance: PREGABALIN
     Dosage: 200 MG, QD
     Route: 048
     Dates: start: 20180329

REACTIONS (1)
  - Refractory cytopenia with multilineage dysplasia [Not Recovered/Not Resolved]

NARRATIVE: CASE EVENT DATE: 20190218
